FAERS Safety Report 7385243-X (Version None)
Quarter: 2011Q1

REPORT INFORMATION
  Report Type: 
  Country: None (occurrence: None)
  Receive Date: 20110330
  Receipt Date: 20110324
  Transmission Date: 20110831
  Serious: Yes (Life-Threatening, Hospitalization)
  Sender: FDA-Public Use
  Company Number: GR-AMGEN-GRCCT2011014864

PATIENT
  Age: 68 Year
  Sex: Male

DRUGS (8)
  1. OXALIPLATIN [Concomitant]
     Dosage: 180 MG, Q3WK
     Route: 042
     Dates: start: 20110117
  2. PANITUMUMAB [Suspect]
     Indication: COLORECTAL CANCER METASTATIC
     Dosage: 378 MG, Q3WK
     Route: 042
     Dates: start: 20110117
  3. MAGNESIUM [Concomitant]
     Dosage: 1.5 G, BID
     Route: 048
     Dates: end: 20110302
  4. XELODA [Concomitant]
     Dosage: 1400 MG, Q3WK
     Route: 048
     Dates: start: 20110117
  5. DECADRON [Concomitant]
     Dosage: 8 MG, UNK
     Route: 042
     Dates: end: 20110302
  6. AEROLIN [Concomitant]
  7. ZOFRAN [Concomitant]
     Dosage: 4 MG, UNK
     Route: 042
     Dates: end: 20110302
  8. PRILOSEC [Concomitant]
     Dosage: 40 MG, UNK
     Dates: end: 20110302

REACTIONS (1)
  - ILEUS [None]
